FAERS Safety Report 24599749 (Version 1)
Quarter: 2024Q4

REPORT INFORMATION
  Report Type: Spontaneous
  Country: US (occurrence: US)
  Receive Date: 20241110
  Receipt Date: 20241110
  Transmission Date: 20250115
  Serious: No
  Sender: SANOFI AVENTIS
  Company Number: US-SA-2024SA320295

PATIENT
  Sex: Female

DRUGS (1)
  1. DUPIXENT [Suspect]
     Active Substance: DUPILUMAB
     Indication: Nasal polyps
     Dosage: 300MG/2ML :  300 MG, EVERY TWO WEEKS
     Route: 058

REACTIONS (2)
  - Impaired quality of life [Not Recovered/Not Resolved]
  - Eye irritation [Not Recovered/Not Resolved]
